FAERS Safety Report 8997118 (Version 2)
Quarter: 2013Q1

REPORT INFORMATION
  Report Type: Spontaneous
  Country: US (occurrence: US)
  Receive Date: 20130104
  Receipt Date: 20130214
  Transmission Date: 20140127
  Serious: Yes (Other)
  Sender: FDA-Public Use
  Company Number: PHEH2012US025450

PATIENT
  Age: 85 Year
  Sex: Female

DRUGS (1)
  1. EXELON PATCH [Suspect]
     Indication: DEMENTIA ALZHEIMER^S TYPE
     Route: 062

REACTIONS (4)
  - Mental disorder [Unknown]
  - Condition aggravated [Unknown]
  - Delirium [Unknown]
  - Abnormal behaviour [Unknown]
